FAERS Safety Report 4347923-X (Version None)
Quarter: 2004Q2

REPORT INFORMATION
  Report Type: 
  Country: None (occurrence: None)
  Receive Date: 20040422
  Receipt Date: 20040406
  Transmission Date: 20050107
  Serious: Yes (Hospitalization)
  Sender: FDA-Public Use
  Company Number: 2004UW04402

PATIENT
  Age: 90 Year
  Sex: Female

DRUGS (1)
  1. SEROQUEL [Suspect]
     Indication: AGITATION
     Dosage: 50 MG BID PO
     Route: 048

REACTIONS (3)
  - FALL [None]
  - PELVIC FRACTURE [None]
  - UPPER LIMB FRACTURE [None]
